FAERS Safety Report 21531639 (Version 1)
Quarter: 2022Q4

REPORT INFORMATION
  Report Type: Spontaneous
  Country: US (occurrence: None)
  Receive Date: 20221028
  Receipt Date: 20221028
  Transmission Date: 20230113
  Serious: No
  Sender: FDA-Public Use
  Company Number: None

PATIENT
  Age: 58 Year
  Sex: Male

DRUGS (1)
  1. LEVALBUTEROL [Suspect]
     Active Substance: LEVALBUTEROL
     Dosage: 45 MCG PRN PO?
     Route: 048
     Dates: start: 20220207, end: 20220406

REACTIONS (2)
  - Headache [None]
  - Oropharyngeal pain [None]

NARRATIVE: CASE EVENT DATE: 20220406
